FAERS Safety Report 12504175 (Version 3)
Quarter: 2016Q3

REPORT INFORMATION
  Report Type: Report from Study
  Country: FR (occurrence: FR)
  Receive Date: 20160628
  Receipt Date: 20160908
  Transmission Date: 20161109
  Serious: Yes (Death, Other)
  Sender: FDA-Public Use
  Company Number: FR-INCYTE CORPORATION-2015IN001169

PATIENT
  Age: 79 Year
  Sex: Male

DRUGS (20)
  1. CORVASAL [Concomitant]
     Active Substance: LINSIDOMINE
     Indication: MYOCARDIAL ISCHAEMIA
     Dosage: 20 MG, QD
     Route: 065
  2. DIFFU K [Concomitant]
     Active Substance: POTASSIUM CHLORIDE
     Dosage: 0.5 DF, QD
  3. JAKAFI [Suspect]
     Active Substance: RUXOLITINIB
     Indication: MYELOFIBROSIS
     Dosage: 10 MG, BID
     Route: 048
     Dates: start: 20140409
  4. ARANESP [Concomitant]
     Active Substance: DARBEPOETIN ALFA
     Indication: ANAEMIA
     Dosage: 150 UG, PER WEEK
     Route: 065
     Dates: start: 20140108
  5. DIFFU K [Concomitant]
     Active Substance: POTASSIUM CHLORIDE
     Dosage: 0.5 DF, QD
  6. LASILIX [Concomitant]
     Active Substance: FUROSEMIDE
     Dosage: 20 OT, QOD (EVERY 2 DAYS)
     Route: 065
  7. DOLIPRANE [Concomitant]
     Active Substance: ACETAMINOPHEN
     Indication: PRODUCT USED FOR UNKNOWN INDICATION
     Dosage: 1 DF, TID
     Route: 065
  8. DIFFU K [Concomitant]
     Active Substance: POTASSIUM CHLORIDE
     Indication: HYPOKALAEMIA
     Dosage: 1/2, QD
     Route: 065
  9. VITAMIN A [Concomitant]
     Active Substance: VITAMIN A
     Indication: PRODUCT USED FOR UNKNOWN INDICATION
     Dosage: UNK UNK, QD (IN THE EVENING)
     Route: 047
  10. TAHOR [Concomitant]
     Active Substance: ATORVASTATIN CALCIUM
     Indication: HYPERCHOLESTEROLAEMIA
     Dosage: 1 DF, QD
     Route: 065
  11. LOPERAMIDE [Concomitant]
     Active Substance: LOPERAMIDE
     Dosage: UNK UNK, PRN
     Route: 065
  12. DIGOXINE [Concomitant]
     Active Substance: DIGOXIN
     Indication: MYOCARDIAL ISCHAEMIA
     Dosage: 2 MG, TID
     Route: 065
  13. DIGOXINE [Concomitant]
     Active Substance: DIGOXIN
     Dosage: 0.25 OT, QD
     Route: 065
  14. TAHOR [Concomitant]
     Active Substance: ATORVASTATIN CALCIUM
     Dosage: 20 UNK, UNK
     Route: 065
  15. LASILIX [Concomitant]
     Active Substance: FUROSEMIDE
     Indication: MYOCARDIAL ISCHAEMIA
     Dosage: 20 MG, QD
     Route: 065
  16. FUCIDINE [Concomitant]
     Active Substance: FUSIDIC ACID
     Indication: PRODUCT USED FOR UNKNOWN INDICATION
     Route: 065
  17. KARDEGIC [Concomitant]
     Active Substance: ASPIRIN LYSINE
     Indication: MYOCARDIAL ISCHAEMIA
     Dosage: 75 MG, QD
     Route: 065
  18. CORVASAL [Concomitant]
     Active Substance: LINSIDOMINE
     Dosage: 2 MG, TID
     Route: 065
  19. IMODIUM [Concomitant]
     Active Substance: LOPERAMIDE HYDROCHLORIDE
     Indication: DIARRHOEA
     Route: 065
  20. LOPERAMIDE [Concomitant]
     Active Substance: LOPERAMIDE
     Indication: PRODUCT USED FOR UNKNOWN INDICATION
     Dosage: UNK UNK, PRN
     Route: 065

REACTIONS (3)
  - Second primary malignancy [Fatal]
  - Metastases to lymph nodes [Unknown]
  - Metastatic squamous cell carcinoma [Fatal]

NARRATIVE: CASE EVENT DATE: 20150126
